FAERS Safety Report 7674618-7 (Version None)
Quarter: 2011Q3

REPORT INFORMATION
  Report Type: 
  Country: None (occurrence: None)
  Receive Date: 20110810
  Receipt Date: 20110805
  Transmission Date: 20111222
  Serious: Yes (Death, Other)
  Sender: FDA-Public Use
  Company Number: VE-PFIZER INC-2011154497

PATIENT
  Age: 58 Year
  Sex: Female

DRUGS (5)
  1. PLAVIX [Concomitant]
  2. ACETYLSALICYLIC ACID [Concomitant]
  3. LIPITOR [Suspect]
     Dosage: 10 MG, 1X/DAY
     Route: 048
     Dates: start: 20090101, end: 20091210
  4. VALSARTAN [Concomitant]
     Indication: HYPERTENSION
  5. ASPIRIN [Concomitant]

REACTIONS (2)
  - INFARCTION [None]
  - CARDIAC OPERATION [None]
